FAERS Safety Report 23033219 (Version 1)
Quarter: 2023Q4

REPORT INFORMATION
  Report Type: Spontaneous
  Country: US (occurrence: US)
  Receive Date: 20231005
  Receipt Date: 20231005
  Transmission Date: 20240109
  Serious: No
  Sender: FDA-Public Use
  Company Number: US-HBP-2023US029685

PATIENT
  Age: 55 Year
  Sex: Male

DRUGS (1)
  1. MECHLORETHAMINE [Suspect]
     Active Substance: MECHLORETHAMINE
     Indication: Cutaneous T-cell lymphoma stage I
     Dosage: UNK, UNKNOWN
     Route: 061

REACTIONS (2)
  - Post inflammatory pigmentation change [Not Recovered/Not Resolved]
  - Application site dermatitis [Recovered/Resolved]
